FAERS Safety Report 8726517 (Version 2)
Quarter: 2018Q4

REPORT INFORMATION
  Report Type: Spontaneous
  Country: US (occurrence: US)
  Receive Date: 20120816
  Receipt Date: 20181205
  Transmission Date: 20190205
  Serious: Yes (Hospitalization, Other)
  Sender: FDA-Public Use
  Company Number: US-PFIZER INC-2012195521

PATIENT
  Age: 34 Year
  Sex: Male

DRUGS (5)
  1. ISOPRINOSINE [Concomitant]
     Active Substance: INOSINE PRANOBEX
     Dosage: UNK
  2. ACYCLOVIR. [Concomitant]
     Active Substance: ACYCLOVIR
     Dosage: UNK
  3. SULFAMETHOXAZOLE/TRIMETHOPRIM [Suspect]
     Active Substance: SULFAMETHOXAZOLE\TRIMETHOPRIM
     Indication: PNEUMOCYSTIS JIROVECII PNEUMONIA
     Dosage: 120 MG/KG, DAILY (TMP 20 MG/KG/D, SMX 100 MG/KG/D)
     Route: 042
  4. NYSTATIN. [Concomitant]
     Active Substance: NYSTATIN
     Dosage: UNK
  5. SULFAMETHOXAZOLE/TRIMETHOPRIM [Suspect]
     Active Substance: SULFAMETHOXAZOLE\TRIMETHOPRIM
     Indication: PNEUMOCYSTIS JIROVECII PNEUMONIA
     Dosage: 1 DF, 2X/DAY
     Route: 048

REACTIONS (18)
  - Pyrexia [Recovering/Resolving]
  - Dermatitis exfoliative generalised [Recovering/Resolving]
  - Nausea [Recovering/Resolving]
  - Pulmonary oedema [Recovering/Resolving]
  - Liver function test increased [Recovering/Resolving]
  - Anaphylactic reaction [Recovering/Resolving]
  - Pruritus [Recovering/Resolving]
  - Arthralgia [Unknown]
  - Chills [Recovering/Resolving]
  - Rhabdomyolysis [Recovering/Resolving]
  - Dyspnoea [Unknown]
  - Conjunctival hyperaemia [Recovering/Resolving]
  - Hypoxia [Recovering/Resolving]
  - Vision blurred [Recovering/Resolving]
  - Hypotension [Recovering/Resolving]
  - Tachycardia [Unknown]
  - Neutropenia [Unknown]
  - Rash erythematous [Recovering/Resolving]
